FAERS Safety Report 10495467 (Version 1)
Quarter: 2014Q3

REPORT INFORMATION
  Report Type: Spontaneous
  Country: US (occurrence: None)
  Receive Date: 20140815
  Receipt Date: 20140815
  Transmission Date: 20150326
  Serious: Yes (Hospitalization, Other)
  Sender: FDA-Public Use
  Company Number: ADR-2014-00001

PATIENT
  Age: 77 Year
  Sex: Male

DRUGS (3)
  1. BUPIVACAINE [Suspect]
     Active Substance: BUPIVACAINE
     Dosage: 9.3/DAY
  2. DILAUDID [Suspect]
     Active Substance: HYDROMORPHONE HYDROCHLORIDE
     Dosage: 15/5/DAY
  3. BACLOFEN (1000 MCG/ML) [Suspect]
     Active Substance: BACLOFEN
     Indication: PAIN
     Dosage: 388.1/DAY

REACTIONS (6)
  - Urinary tract infection [None]
  - Depressed level of consciousness [None]
  - Sudden onset of sleep [None]
  - Confusional state [None]
  - Overdose [None]
  - Poor quality sleep [None]
